FAERS Safety Report 8009094 (Version 3)
Quarter: 2013Q4

REPORT INFORMATION
  Report Type: Report from Study
  Country: JP (occurrence: JP)
  Receive Date: 20110624
  Receipt Date: 20131023
  Transmission Date: 20140711
  Serious: Yes (Hospitalization, Other)
  Sender: FDA-Public Use
  Company Number: JP-CELGENEUS-087-50794-11062086

PATIENT
  Age: 71 Year
  Sex: Male

DRUGS (26)
  1. VIDAZA [Suspect]
     Indication: MYELODYSPLASTIC SYNDROME
     Dosage: 75 MILLIGRAM/SQ. METER
     Route: 058
     Dates: start: 20110316, end: 20110322
  2. VIDAZA [Suspect]
     Dosage: 100 MILLIGRAM
     Route: 058
     Dates: start: 20110413, end: 20110419
  3. VIDAZA [Suspect]
     Route: 065
     Dates: start: 20110419, end: 20110425
  4. VIDAZA [Suspect]
     Dosage: 75 MILLIGRAM/SQ. METER
     Route: 058
     Dates: start: 20110517, end: 20110523
  5. VIDAZA [Suspect]
     Route: 065
     Dates: start: 20110620, end: 20110628
  6. VIDAZA [Suspect]
     Route: 065
     Dates: start: 20110725, end: 20110802
  7. VIDAZA [Suspect]
     Route: 065
     Dates: start: 20110831, end: 20110906
  8. GASMOTIN [Concomitant]
     Indication: PRODUCT USED FOR UNKNOWN INDICATION
     Dosage: 15 MILLIGRAM
     Route: 048
     Dates: start: 20110316
  9. TAKEPRON [Concomitant]
     Indication: PRODUCT USED FOR UNKNOWN INDICATION
     Dosage: 15 MILLIGRAM
     Route: 048
     Dates: start: 20110316
  10. MAGNESIUM OXIDE [Concomitant]
     Indication: PRODUCT USED FOR UNKNOWN INDICATION
     Dosage: 990 MILLIGRAM
     Route: 048
     Dates: start: 20110316
  11. MYSLEE [Concomitant]
     Indication: PRODUCT USED FOR UNKNOWN INDICATION
     Dosage: 10 MILLIGRAM
     Route: 048
     Dates: start: 20110316
  12. ALFAROL [Concomitant]
     Indication: PRODUCT USED FOR UNKNOWN INDICATION
     Dosage: 1 MICROGRAM
     Route: 048
     Dates: start: 20110316
  13. GLAKAY [Concomitant]
     Indication: PRODUCT USED FOR UNKNOWN INDICATION
     Route: 048
     Dates: start: 20110316
  14. ADEROXAL [Concomitant]
     Indication: PRODUCT USED FOR UNKNOWN INDICATION
     Route: 048
     Dates: start: 20110316
  15. CRAVIT [Concomitant]
     Indication: PRODUCT USED FOR UNKNOWN INDICATION
     Route: 048
     Dates: start: 20110316, end: 20110513
  16. ITRIZOLE [Concomitant]
     Indication: PRODUCT USED FOR UNKNOWN INDICATION
     Route: 048
     Dates: start: 20110316
  17. BAKTAR [Concomitant]
     Indication: PRODUCT USED FOR UNKNOWN INDICATION
     Route: 065
     Dates: start: 20110316
  18. ALOXI [Concomitant]
     Indication: PRODUCT USED FOR UNKNOWN INDICATION
     Route: 041
     Dates: start: 20110316, end: 20110316
  19. ALOXI [Concomitant]
     Route: 041
     Dates: start: 20110319, end: 20110319
  20. ALOXI [Concomitant]
     Route: 041
     Dates: start: 20110419, end: 20110419
  21. ALOXI [Concomitant]
     Route: 041
     Dates: start: 20110422, end: 20110422
  22. NEUTROGIN [Concomitant]
     Indication: PRODUCT USED FOR UNKNOWN INDICATION
     Route: 041
     Dates: start: 20110407, end: 20110407
  23. GRAN [Concomitant]
     Indication: PRODUCT USED FOR UNKNOWN INDICATION
     Route: 041
     Dates: start: 20110417, end: 20110417
  24. GRAN [Concomitant]
     Dosage: 75 MICROGRAM
     Route: 041
     Dates: start: 20110501, end: 20110501
  25. GRAN [Concomitant]
     Dosage: 75 MICROGRAM
     Route: 041
     Dates: start: 20110511, end: 20110511
  26. FRESMIN-S [Concomitant]
     Indication: PRODUCT USED FOR UNKNOWN INDICATION
     Route: 041
     Dates: start: 20110406, end: 20110406

REACTIONS (12)
  - Supraventricular extrasystoles [Recovered/Resolved]
  - Supraventricular extrasystoles [Recovered/Resolved]
  - Neutrophil count decreased [Recovered/Resolved]
  - Blood potassium increased [Recovered/Resolved]
  - Gingivitis [Recovered/Resolved]
  - Upper respiratory tract inflammation [Recovered/Resolved]
  - Blood creatinine increased [Recovered/Resolved]
  - Anaemia [Recovered/Resolved]
  - Platelet count decreased [Recovered/Resolved]
  - Injection site reaction [Recovered/Resolved]
  - White blood cell count decreased [Unknown]
  - Neutrophil count decreased [Recovered/Resolved]
